FAERS Safety Report 5856621-2 (Version None)
Quarter: 2008Q3

REPORT INFORMATION
  Report Type: 
  Country: None (occurrence: None)
  Receive Date: 20080822
  Receipt Date: 20080822
  Transmission Date: 20090109
  Serious: Yes (Other)
  Sender: FDA-Public Use
  Company Number: None

PATIENT
  Sex: Female
  Weight: 43 kg

DRUGS (2)
  1. ONCASPAR [Suspect]
     Indication: ACUTE LYMPHOCYTIC LEUKAEMIA
     Dosage: 3250 UNITS 3 MONTHS APART IM
     Route: 030
     Dates: start: 20070813, end: 20071113
  2. ONCASPAR [Suspect]

REACTIONS (2)
  - RASH [None]
  - URTICARIA [None]
